FAERS Safety Report 5955162-1 (Version None)
Quarter: 2008Q4

REPORT INFORMATION
  Report Type: 
  Country: None (occurrence: None)
  Receive Date: 20081113
  Receipt Date: 20081113
  Transmission Date: 20090506
  Serious: Yes (Hospitalization)
  Sender: FDA-Public Use
  Company Number: None

PATIENT
  Sex: Male
  Weight: 95.9 kg

DRUGS (5)
  1. OLANZAPINE [Suspect]
     Indication: SCHIZOPHRENIA, PARANOID TYPE
     Dosage: AS ABOVE
     Dates: start: 20080401
  2. LEVITRA [Concomitant]
  3. OLANZAPINE [Concomitant]
  4. SYNTHROID [Concomitant]
  5. NEURONTIN [Concomitant]

REACTIONS (1)
  - ABNORMAL BEHAVIOUR [None]
